FAERS Safety Report 24175106 (Version 1)
Quarter: 2024Q3

REPORT INFORMATION
  Report Type: Spontaneous
  Country: CA (occurrence: CA)
  Receive Date: 20240805
  Receipt Date: 20240805
  Transmission Date: 20241017
  Serious: Yes (Other)
  Sender: VIIV
  Company Number: CA-VIIV HEALTHCARE LIMITED-CA2024AMR095276

PATIENT

DRUGS (1)
  1. DOVATO [Suspect]
     Active Substance: DOLUTEGRAVIR SODIUM\LAMIVUDINE
     Indication: Product used for unknown indication
     Dosage: UNK

REACTIONS (7)
  - Dementia [Unknown]
  - Pathogen resistance [Unknown]
  - Depression [Unknown]
  - Mental disorder [Unknown]
  - Social problem [Unknown]
  - Treatment failure [Unknown]
  - Treatment noncompliance [Unknown]
